FAERS Safety Report 8817396 (Version 2)
Quarter: 2012Q4

REPORT INFORMATION
  Report Type: Report from Study
  Country: GB (occurrence: GB)
  Receive Date: 20121004
  Receipt Date: 20121009
  Transmission Date: 20130627
  Serious: Yes (Hospitalization)
  Sender: FDA-Public Use
  Company Number: GB-PFIZER INC-2012239734

PATIENT
  Age: 64 Year
  Sex: Male
  Weight: 95 kg

DRUGS (2)
  1. CELECOXIB [Suspect]
     Indication: OSTEOARTHRITIS
     Dosage: 100 mg, 2x/day
     Route: 048
     Dates: start: 20120323, end: 20120623
  2. PARACETAMOL [Concomitant]
     Dosage: UNK
     Dates: start: 20120521

REACTIONS (2)
  - Diverticulum [Recovering/Resolving]
  - Abdominal pain [Recovering/Resolving]
